FAERS Safety Report 9460919 (Version 6)
Quarter: 2014Q1

REPORT INFORMATION
  Report Type: Spontaneous
  Country: US (occurrence: US)
  Receive Date: 20130816
  Receipt Date: 20140325
  Transmission Date: 20141002
  Serious: Yes (Hospitalization)
  Sender: FDA-Public Use
  Company Number: US-BIOGENIDEC-2013BI073997

PATIENT
  Age: 60 Year
  Sex: Female

DRUGS (3)
  1. AVONEX [Suspect]
     Indication: MULTIPLE SCLEROSIS
     Route: 030
     Dates: start: 19960801, end: 201308
  2. AVONEX [Suspect]
     Indication: MULTIPLE SCLEROSIS
     Route: 030
  3. IMURAN [Concomitant]
     Indication: MULTIPLE SCLEROSIS

REACTIONS (9)
  - Progressive multifocal leukoencephalopathy [Not Recovered/Not Resolved]
  - Humerus fracture [Not Recovered/Not Resolved]
  - Pyrexia [Unknown]
  - Confusional state [Recovered/Resolved]
  - Gait disturbance [Recovered/Resolved]
  - Fall [Recovered/Resolved]
  - Multiple sclerosis relapse [Not Recovered/Not Resolved]
  - Adverse drug reaction [Unknown]
  - Lower limb fracture [Recovered/Resolved]
